FAERS Safety Report 19009585 (Version 6)
Quarter: 2021Q2

REPORT INFORMATION
  Report Type: Report from Study
  Country: None (occurrence: US)
  Receive Date: 20210315
  Receipt Date: 20210622
  Transmission Date: 20210717
  Serious: Yes (Other)
  Sender: FDA-Public Use
  Company Number: US-ABBVIE-21K-163-3808347-00

PATIENT
  Age: 77 Year
  Sex: Female

DRUGS (4)
  1. HYDROCODONE [Concomitant]
     Active Substance: HYDROCODONE
     Indication: PRODUCT USED FOR UNKNOWN INDICATION
  2. IMBRUVICA [Suspect]
     Active Substance: IBRUTINIB
     Route: 048
     Dates: end: 20210428
  3. IMBRUVICA [Suspect]
     Active Substance: IBRUTINIB
     Indication: CHRONIC LYMPHOCYTIC LEUKAEMIA
     Route: 048
     Dates: start: 20200901
  4. IMBRUVICA [Suspect]
     Active Substance: IBRUTINIB
     Route: 048
     Dates: start: 20200901

REACTIONS (27)
  - Blood potassium increased [Recovering/Resolving]
  - Headache [Unknown]
  - Stomatitis [Not Recovered/Not Resolved]
  - Spinal pain [Unknown]
  - Blindness unilateral [Recovering/Resolving]
  - Concussion [Unknown]
  - Hepatic pain [Not Recovered/Not Resolved]
  - Visual impairment [Recovering/Resolving]
  - Back pain [Not Recovered/Not Resolved]
  - Joint swelling [Not Recovered/Not Resolved]
  - Fall [Recovered/Resolved]
  - Dyspnoea [Not Recovered/Not Resolved]
  - Ligament rupture [Recovered/Resolved]
  - Peripheral swelling [Not Recovered/Not Resolved]
  - Obsessive-compulsive disorder [Recovering/Resolving]
  - Pain in jaw [Unknown]
  - Contusion [Not Recovered/Not Resolved]
  - Haematuria [Recovered/Resolved]
  - Memory impairment [Recovering/Resolving]
  - Oral pain [Not Recovered/Not Resolved]
  - Haemoglobin increased [Unknown]
  - Toothache [Not Recovered/Not Resolved]
  - Amnesia [Recovering/Resolving]
  - Rib fracture [Recovered/Resolved]
  - Splenomegaly [Not Recovered/Not Resolved]
  - Periorbital pain [Unknown]
  - Onychoclasis [Not Recovered/Not Resolved]

NARRATIVE: CASE EVENT DATE: 202009
